FAERS Safety Report 4775731-4 (Version None)
Quarter: 2005Q3

REPORT INFORMATION
  Report Type: 
  Country: None (occurrence: None)
  Receive Date: 20050922
  Receipt Date: 20050615
  Transmission Date: 20060218
  Serious: Yes (Death, Hospitalization)
  Sender: FDA-Public Use
  Company Number: ESWYE747415JUN05

PATIENT
  Sex: Male

DRUGS (6)
  1. ENBREL [Suspect]
     Indication: ANKYLOSING SPONDYLITIS
     Route: 058
     Dates: start: 20050329, end: 20050601
  2. METHOTREXATE [Suspect]
     Indication: ANKYLOSING SPONDYLITIS
     Route: 048
     Dates: start: 19980610, end: 20050601
  3. FOLIC ACID [Concomitant]
     Dates: start: 19980101, end: 20050601
  4. NIFEDIPINE [Concomitant]
     Dates: end: 20050601
  5. PREDNISONE [Concomitant]
     Dates: end: 20050601
  6. OMEPRAZOLE [Concomitant]
     Dates: end: 20050601

REACTIONS (6)
  - ANAEMIA [None]
  - APLASIA [None]
  - BRONCHOPNEUMONIA [None]
  - HEPATOMEGALY [None]
  - LEUKOPENIA [None]
  - PANCYTOPENIA [None]
